FAERS Safety Report 4568375-0 (Version None)
Quarter: 2005Q1

REPORT INFORMATION
  Report Type: 
  Country: None (occurrence: None)
  Receive Date: 20050131
  Receipt Date: 20050113
  Transmission Date: 20050727
  Serious: Yes (Hospitalization)
  Sender: FDA-Public Use
  Company Number: ATO-05-0011

PATIENT
  Age: 51 Year
  Sex: Female

DRUGS (2)
  1. TRISENOX [Suspect]
     Indication: ACUTE PROMYELOCYTIC LEUKAEMIA
     Dosage: IVI
     Route: 042
     Dates: start: 20041229, end: 20050103
  2. NEUPOGEN [Suspect]
     Indication: INFECTION PROPHYLAXIS
     Dates: end: 20050103

REACTIONS (4)
  - CHEST PAIN [None]
  - INTERSTITIAL LUNG DISEASE [None]
  - PLEURAL EFFUSION [None]
  - WHITE BLOOD CELL COUNT INCREASED [None]
